FAERS Safety Report 8606608-1 (Version None)
Quarter: 2012Q3

REPORT INFORMATION
  Report Type: 
  Country: None (occurrence: None)
  Receive Date: 20120809
  Receipt Date: 20120809
  Transmission Date: 20120928
  Serious: Yes (Life-Threatening)
  Sender: FDA-Public Use
  Company Number: None

PATIENT
  Age: 59 Year
  Sex: Male

DRUGS (2)
  1. CIPROFLOXACIN HCL [Suspect]
     Indication: SURGERY
     Dates: start: 20120229, end: 20120307
  2. CIPROFLOXACIN HCL [Suspect]
     Indication: ESCHERICHIA SEPSIS
     Dates: start: 20120229, end: 20120307

REACTIONS (1)
  - HYPOGLYCAEMIA [None]
